FAERS Safety Report 6657246-1 (Version None)
Quarter: 2010Q1

REPORT INFORMATION
  Report Type: 
  Country: None (occurrence: None)
  Receive Date: 20100330
  Receipt Date: 20100114
  Transmission Date: 20100710
  Serious: Yes (Hospitalization)
  Sender: FDA-Public Use
  Company Number: BE-ASTRAZENECA-2010SE01744

PATIENT
  Age: 798 Month
  Sex: Male

DRUGS (3)
  1. NEXIUM [Suspect]
     Indication: REFLUX OESOPHAGITIS
     Route: 048
     Dates: start: 20081202
  2. NEXIUM [Suspect]
     Route: 048
  3. ZANIDIP [Concomitant]

REACTIONS (3)
  - CEREBRAL HAEMORRHAGE [None]
  - COMA [None]
  - LUNG INFECTION [None]
